FAERS Safety Report 6041921-6 (Version None)
Quarter: 2009Q1

REPORT INFORMATION
  Report Type: 
  Country: None (occurrence: None)
  Receive Date: 20090116
  Receipt Date: 20090105
  Transmission Date: 20090719
  Serious: Yes (Other)
  Sender: FDA-Public Use
  Company Number: CL-ROCHE-606623

PATIENT
  Age: 45 Year
  Sex: Male
  Weight: 74 kg

DRUGS (1)
  1. XELODA [Suspect]
     Indication: COLON CANCER
     Dosage: DOSE: 9 TABS DAILY FOR 2 WEEKS FOLLOWED BY A 7 DAY REST PERIOD (6 CYCLES).
     Route: 048
     Dates: start: 20071001, end: 20080401

REACTIONS (2)
  - HYPERLIPIDAEMIA [None]
  - PULMONARY EMBOLISM [None]
